FAERS Safety Report 20691854 (Version 1)
Quarter: 2022Q2

REPORT INFORMATION
  Report Type: Spontaneous
  Country: US (occurrence: None)
  Receive Date: 20220407
  Receipt Date: 20220407
  Transmission Date: 20220720
  Serious: No
  Sender: FDA-Public Use
  Company Number: None

PATIENT
  Age: 69 Year
  Sex: Female
  Weight: 85.5 kg

DRUGS (20)
  1. INLYTA [Suspect]
     Active Substance: AXITINIB
     Indication: Renal cancer
     Dosage: FREQUENCY : TWICE A DAY;?
     Route: 048
     Dates: start: 202201, end: 20220323
  2. Allegra-D Allergy [Concomitant]
  3. BLOOD GLUCOSE [Concomitant]
  4. CARAFATE [Concomitant]
     Active Substance: SUCRALFATE
  5. CLONAZEPAM [Concomitant]
     Active Substance: CLONAZEPAM
  6. CRESTOR [Concomitant]
     Active Substance: ROSUVASTATIN CALCIUM
  7. FLONASE [Concomitant]
     Active Substance: FLUTICASONE PROPIONATE
  8. INSULIN PEN NEEDLE [Concomitant]
  9. KEYTRUDA [Concomitant]
     Active Substance: PEMBROLIZUMAB
  10. MIRALAX [Concomitant]
     Active Substance: POLYETHYLENE GLYCOL 3350
  11. NITROSTAT [Concomitant]
     Active Substance: NITROGLYCERIN
  12. NORCO [Concomitant]
     Active Substance: ACETAMINOPHEN\HYDROCODONE BITARTRATE
  13. PAXIL [Concomitant]
     Active Substance: PAROXETINE HYDROCHLORIDE
  14. PLAVIX [Concomitant]
     Active Substance: CLOPIDOGREL BISULFATE
  15. PROMETHAZINE [Concomitant]
     Active Substance: PROMETHAZINE HYDROCHLORIDE
  16. RANEXA [Concomitant]
     Active Substance: RANOLAZINE
  17. SENOKOT [Concomitant]
     Active Substance: SENNOSIDES
  18. TRESIBA [Concomitant]
     Active Substance: INSULIN DEGLUDEC
  19. TRICOR [Concomitant]
     Active Substance: FENOFIBRATE
  20. VELTASSA [Concomitant]
     Active Substance: PATIROMER

REACTIONS (1)
  - Proteinuria [None]
